FAERS Safety Report 12419580 (Version 2)
Quarter: 2016Q2

REPORT INFORMATION
  Report Type: Spontaneous
  Country: US (occurrence: US)
  Receive Date: 20160531
  Receipt Date: 20160614
  Transmission Date: 20160815
  Serious: Yes (Life-Threatening, Hospitalization, Other)
  Sender: FDA-Public Use
  Company Number: US-VIIV HEALTHCARE LIMITED-US2016075995

PATIENT
  Age: 58 Year
  Sex: Male
  Weight: 81.63 kg

DRUGS (1)
  1. TRIUMEQ [Suspect]
     Active Substance: ABACAVIR SULFATE\DOLUTEGRAVIR SODIUM\LAMIVUDINE
     Indication: HIV INFECTION
     Dosage: 1 DF, QD
     Route: 048
     Dates: start: 20141217, end: 20160518

REACTIONS (2)
  - Myocardial infarction [Recovered/Resolved]
  - Coronary artery bypass [Unknown]

NARRATIVE: CASE EVENT DATE: 20160318
